FAERS Safety Report 7319262-6 (Version None)
Quarter: 2011Q1

REPORT INFORMATION
  Report Type: 
  Country: None (occurrence: None)
  Receive Date: 20110228
  Receipt Date: 20100104
  Transmission Date: 20110831
  Serious: No
  Sender: FDA-Public Use
  Company Number: A0837397A

PATIENT
  Sex: Female

DRUGS (2)
  1. LAMOTRIGINE [Suspect]
     Route: 065
  2. LAMICTAL [Suspect]
     Route: 065

REACTIONS (3)
  - AMNESIA [None]
  - ALOPECIA [None]
  - SOCIAL AVOIDANT BEHAVIOUR [None]
